FAERS Safety Report 5055257-3 (Version None)
Quarter: 2006Q3

REPORT INFORMATION
  Report Type: 
  Country: None (occurrence: None)
  Receive Date: 20060719
  Receipt Date: 20051024
  Transmission Date: 20061208
  Serious: Yes (Death, Other)
  Sender: FDA-Public Use
  Company Number: IT-BRISTOL-MYERS SQUIBB COMPANY-13155197

PATIENT
  Age: 63 Year
  Sex: Male

DRUGS (2)
  1. CYCLOPHOSPHAMIDE [Suspect]
     Indication: NEPHROTIC SYNDROME
     Dates: start: 20020501
  2. PREDNISONE [Suspect]
     Indication: NEPHROTIC SYNDROME
     Dates: start: 20020501

REACTIONS (3)
  - HEPATITIS B [None]
  - MULTI-ORGAN FAILURE [None]
  - SECONDARY IMMUNODEFICIENCY [None]
